FAERS Safety Report 24675844 (Version 2)
Quarter: 2024Q4

REPORT INFORMATION
  Report Type: Spontaneous
  Country: US (occurrence: US)
  Receive Date: 20241128
  Receipt Date: 20241128
  Transmission Date: 20250115
  Serious: Yes (Death)
  Sender: AMGEN
  Company Number: US-AMGEN-USASP2024231932

PATIENT

DRUGS (3)
  1. RITUXIMAB [Suspect]
     Active Substance: RITUXIMAB
     Indication: Renal disorder
     Dosage: UNK
     Route: 065
  2. OBINUTUZUMAB [Concomitant]
     Active Substance: OBINUTUZUMAB
     Indication: Renal disorder
     Dosage: 1000 MG/1.73 M^2/DOSE
     Route: 065
  3. OFATUMUMAB [Concomitant]
     Active Substance: OFATUMUMAB
     Indication: Renal disorder
     Dosage: 300 MG/1.73 M^2/DOSE
     Route: 065

REACTIONS (5)
  - Death [Fatal]
  - Drug ineffective for unapproved indication [Unknown]
  - Renal disorder [Unknown]
  - Adverse reaction [Unknown]
  - Off label use [Unknown]
